FAERS Safety Report 22386572 (Version 4)
Quarter: 2025Q2

REPORT INFORMATION
  Report Type: Report from Study
  Country: ES (occurrence: ES)
  Receive Date: 20230531
  Receipt Date: 20250509
  Transmission Date: 20250717
  Serious: Yes (Other)
  Sender: CELLTRION
  Company Number: ES-CELLTRION INC.-2023ES010889

PATIENT

DRUGS (7)
  1. RITUXIMAB [Interacting]
     Active Substance: RITUXIMAB
     Indication: Granulomatosis with polyangiitis
     Route: 065
  2. ELASOMERAN [Interacting]
     Active Substance: ELASOMERAN
     Indication: COVID-19 prophylaxis
  3. ELASOMERAN [Interacting]
     Active Substance: ELASOMERAN
  4. ELASOMERAN [Interacting]
     Active Substance: ELASOMERAN
  5. SPIKEVAX [Interacting]
     Active Substance: CX-046684
     Indication: COVID-19 prophylaxis
     Route: 065
  6. SPIKEVAX [Interacting]
     Active Substance: CX-046684
     Route: 065
  7. SPIKEVAX [Interacting]
     Active Substance: CX-046684
     Route: 065

REACTIONS (3)
  - COVID-19 [Unknown]
  - Humoral immune defect [Unknown]
  - Vaccine interaction [Unknown]
